FAERS Safety Report 24971211 (Version 2)
Quarter: 2025Q1

REPORT INFORMATION
  Report Type: Report from Study
  Country: JP (occurrence: JP)
  Receive Date: 20250214
  Receipt Date: 20250227
  Transmission Date: 20250408
  Serious: Yes (Other)
  Sender: ALEXION PHARMACEUTICALS
  Company Number: JP-ASTRAZENECA-230027049_011820_P_1

PATIENT
  Age: 18 Year
  Weight: 79 kg

DRUGS (5)
  1. KOSELUGO [Suspect]
     Active Substance: SELUMETINIB
     Indication: Neurofibromatosis
     Dosage: 50 MILLIGRAM, BID
  2. KOSELUGO [Suspect]
     Active Substance: SELUMETINIB
     Dosage: 35 MILLIGRAM, BID
  3. KOSELUGO [Suspect]
     Active Substance: SELUMETINIB
     Dosage: 35 MILLIGRAM, BID
  4. KOSELUGO [Suspect]
     Active Substance: SELUMETINIB
     Dosage: 50 MILLIGRAM, BID
  5. KOSELUGO [Suspect]
     Active Substance: SELUMETINIB

REACTIONS (4)
  - Serous retinal detachment [Recovering/Resolving]
  - Blood creatine phosphokinase increased [Recovered/Resolved]
  - Rash [Recovering/Resolving]
  - Product dose omission issue [Unknown]
